FAERS Safety Report 10741249 (Version 2)
Quarter: 2015Q1

REPORT INFORMATION
  Report Type: Spontaneous
  Country: DE (occurrence: DE)
  Receive Date: 20150127
  Receipt Date: 20150203
  Transmission Date: 20150721
  Serious: No
  Sender: FDA-Public Use
  Company Number: DE-ASTELLAS-2015US002086

PATIENT
  Age: 63 Year
  Sex: Male

DRUGS (1)
  1. XTANDI [Suspect]
     Active Substance: ENZALUTAMIDE
     Indication: PRODUCT USED FOR UNKNOWN INDICATION
     Route: 065

REACTIONS (4)
  - Sleep disorder [Unknown]
  - Blood pressure increased [Unknown]
  - Heart rate increased [Unknown]
  - Restlessness [Unknown]
